FAERS Safety Report 5377796-8 (Version None)
Quarter: 2007Q3

REPORT INFORMATION
  Report Type: 
  Country: None (occurrence: None)
  Receive Date: 20070703
  Receipt Date: 20070627
  Transmission Date: 20080115
  Serious: Yes (Other)
  Sender: FDA-Public Use
  Company Number: DE-ABBOTT-07P-062-0373066-00

PATIENT
  Age: 48 Year
  Sex: Female

DRUGS (5)
  1. HUMIRA [Suspect]
     Indication: RHEUMATOID ARTHRITIS
     Route: 058
  2. HUMIRA [Suspect]
     Route: 058
  3. METHOTREXATE [Concomitant]
     Indication: RHEUMATOID ARTHRITIS
  4. GLUCOCORTICOIDS [Concomitant]
     Indication: RHEUMATOID ARTHRITIS
     Route: 048
  5. NSAR (NOS) [Concomitant]
     Indication: RHEUMATOID ARTHRITIS

REACTIONS (1)
  - FOOT OPERATION [None]
